FAERS Safety Report 4868158-8 (Version None)
Quarter: 2005Q4

REPORT INFORMATION
  Report Type: 
  Country: None (occurrence: None)
  Receive Date: 20051223
  Receipt Date: 20051215
  Transmission Date: 20060501
  Serious: Yes (Hospitalization)
  Sender: FDA-Public Use
  Company Number: 2005S1011985

PATIENT
  Age: 84 Year
  Sex: Female

DRUGS (2)
  1. MAXZIDE TABLETS (25 MG) [Suspect]
     Indication: HYPERTENSION
     Dosage: 12.5 MG; QD; ORAL
     Route: 048
     Dates: start: 20030101
  2. ATORVASTATIN [Concomitant]

REACTIONS (3)
  - CEREBROVASCULAR ACCIDENT [None]
  - DYSPHAGIA [None]
  - HYPOAESTHESIA [None]
